FAERS Safety Report 4801371-4 (Version None)
Quarter: 2005Q4

REPORT INFORMATION
  Report Type: 
  Country: None (occurrence: None)
  Receive Date: 20051012
  Receipt Date: 20050929
  Transmission Date: 20060501
  Serious: Yes (Life-Threatening)
  Sender: FDA-Public Use
  Company Number: 2005-CZ-00440

PATIENT
  Age: 21 Year
  Sex: Female

DRUGS (8)
  1. GABAPENTIN TABLETS, 100 MG, 300 MG, 400 MG, 600MG 800 MG (GABAPENTIN) [Suspect]
     Indication: EPILEPSY
     Dosage: 1800 MG, 3 IN 1 D, ORAL
     Route: 048
     Dates: start: 20030523
  2. SODIUM VALPROATE ENTERIC COATED TABETS 500 MG (VALPROIC ACID) [Suspect]
     Dosage: 1000 MG, 2 IN 1 D, ORAL
     Route: 048
     Dates: start: 20030523
  3. HALPERIDOL [Concomitant]
  4. LORAZEPAM [Concomitant]
  5. PYRIDOXINE HCL [Concomitant]
  6. FLUOXETINE [Concomitant]
  7. OLANZAPINE [Concomitant]
  8. E45 [Concomitant]

REACTIONS (1)
  - PULMONARY OEDEMA [None]
